FAERS Safety Report 17780494 (Version 2)
Quarter: 2020Q2

REPORT INFORMATION
  Report Type: Spontaneous
  Country: US (occurrence: US)
  Receive Date: 20200514
  Receipt Date: 20200608
  Transmission Date: 20200714
  Serious: No
  Sender: FDA-Public Use
  Company Number: US-ASTRAZENECA-2020SE59627

PATIENT
  Age: 22194 Day
  Sex: Female
  Weight: 113.4 kg

DRUGS (3)
  1. LANTUS [Concomitant]
     Active Substance: INSULIN GLARGINE
     Indication: DIABETES MELLITUS
     Route: 058
  2. BYDUREON BCISE [Suspect]
     Active Substance: EXENATIDE
     Indication: TYPE 2 DIABETES MELLITUS
     Route: 058
  3. METFORMIN [Concomitant]
     Active Substance: METFORMIN HYDROCHLORIDE
     Indication: DIABETES MELLITUS
     Route: 048

REACTIONS (7)
  - Nausea [Recovered/Resolved]
  - Incorrect dose administered by device [Unknown]
  - Needle issue [Unknown]
  - Injection site pain [Recovered/Resolved]
  - Wrong technique in device usage process [Unknown]
  - Malaise [Recovered/Resolved]
  - Needle issue [Unknown]

NARRATIVE: CASE EVENT DATE: 20200426
